FAERS Safety Report 15877354 (Version 2)
Quarter: 2019Q1

REPORT INFORMATION
  Report Type: Spontaneous
  Country: US (occurrence: US)
  Receive Date: 20190128
  Receipt Date: 20190131
  Transmission Date: 20190417
  Serious: No
  Sender: FDA-Public Use
  Company Number: US-SA-2019SA020791

PATIENT
  Sex: Female

DRUGS (17)
  1. MIRALAX [Concomitant]
     Active Substance: POLYETHYLENE GLYCOL 3350
  2. AUBAGIO [Suspect]
     Active Substance: TERIFLUNOMIDE
     Indication: MULTIPLE SCLEROSIS
     Dosage: 14 MG, QD
     Route: 048
  3. AMLODIPINE [Concomitant]
     Active Substance: AMLODIPINE BESYLATE
  4. HYDROCODONE BITARTRATE;IBUPROFEN [Concomitant]
  5. CLOBETASOL 0.05% [Concomitant]
     Active Substance: CLOBETASOL
  6. DIAZEPAM. [Concomitant]
     Active Substance: DIAZEPAM
  7. TOPAMAX [Concomitant]
     Active Substance: TOPIRAMATE
  8. PYRIDOXAL 5 PHOSPHATE [Concomitant]
     Active Substance: PYRIDOXAL PHOSPHATE ANHYDROUS
  9. AMANTADINE. [Concomitant]
     Active Substance: AMANTADINE HYDROCHLORIDE
  10. ACEBUTOLOL [Concomitant]
     Active Substance: ACEBUTOLOL
  11. HYDROQUINONE. [Concomitant]
     Active Substance: HYDROQUINONE
  12. BACLOFEN. [Concomitant]
     Active Substance: BACLOFEN
  13. VIVELLE-DOT [Concomitant]
     Active Substance: ESTRADIOL
  14. ADDERALL [Concomitant]
     Active Substance: AMPHETAMINE ASPARTATE\AMPHETAMINE SULFATE\DEXTROAMPHETAMINE SACCHARATE\DEXTROAMPHETAMINE SULFATE
  15. HYDROCODONE [Concomitant]
     Active Substance: HYDROCODONE
  16. CYMBALTA [Concomitant]
     Active Substance: DULOXETINE HYDROCHLORIDE
  17. SENNA [SENNA ALEXANDRINA LEAF] [Concomitant]

REACTIONS (6)
  - Fatigue [Unknown]
  - Malaise [Unknown]
  - Cough [Unknown]
  - Drug ineffective [Unknown]
  - Nasopharyngitis [Unknown]
  - Diarrhoea [Unknown]
